FAERS Safety Report 20101219 (Version 2)
Quarter: 2021Q4

REPORT INFORMATION
  Report Type: Spontaneous
  Country: AR (occurrence: AR)
  Receive Date: 20211123
  Receipt Date: 20211207
  Transmission Date: 20220303
  Serious: Yes (Hospitalization, Other)
  Sender: FDA-Public Use
  Company Number: AR-NOVARTISPH-PHHY2018AR010031

PATIENT
  Sex: Female

DRUGS (10)
  1. TEGRETOL [Suspect]
     Active Substance: CARBAMAZEPINE
     Indication: Epilepsy
     Dosage: 400 UNK
     Route: 065
  2. TEGRETOL [Suspect]
     Active Substance: CARBAMAZEPINE
     Dosage: 1200 MG, QD (3 OF 400 MG, QD, STARTED APPROXIMATELY 15 YEARS AGO AND STOPPED 6 YEARS AGO)
     Route: 065
  3. TEGRETOL [Suspect]
     Active Substance: CARBAMAZEPINE
     Dosage: 1 OF 200 MG, QD, STARTED APPROXIMATELY 1 MONTH AGO
     Route: 065
  4. TEGRETOL [Suspect]
     Active Substance: CARBAMAZEPINE
     Dosage: 2 OF 200 MG, QD, STARTED ONE MONTH AGO
     Route: 065
  5. TEGRETOL [Suspect]
     Active Substance: CARBAMAZEPINE
     Dosage: 3 X 400 MG, QD
     Route: 065
  6. PHENYTOIN SODIUM [Suspect]
     Active Substance: PHENYTOIN SODIUM
     Indication: Product used for unknown indication
     Dosage: UNK
     Route: 065
  7. RUFINAMIDE [Concomitant]
     Active Substance: RUFINAMIDE
     Indication: Epilepsy
     Dosage: 400 MG, QD (^ TABLETS / DAY)SINCE 1 MONTH AGO
     Route: 065
  8. BARNIDIPINE HYDROCHLORIDE [Concomitant]
     Active Substance: BARNIDIPINE HYDROCHLORIDE
     Indication: Hypertension
     Dosage: 1 DOSAGE FORM, QD (SINCE MANY YEARS AGO)
     Route: 065
  9. ZUNDIC [Concomitant]
     Indication: Hypertension
     Dosage: 0.5 DOSAGE FORM, QD (MANY YEARS AGO)
     Route: 065
  10. ROSUVASTATIN [Concomitant]
     Active Substance: ROSUVASTATIN
     Indication: Blood cholesterol
     Dosage: 10 MG, QD
     Route: 065

REACTIONS (15)
  - Blood sodium decreased [Recovering/Resolving]
  - Blood potassium decreased [Recovered/Resolved]
  - Dysstasia [Recovering/Resolving]
  - Fatigue [Unknown]
  - Muscular weakness [Unknown]
  - Paralysis [Unknown]
  - Muscle rigidity [Unknown]
  - Neuropathy peripheral [Unknown]
  - Nervousness [Unknown]
  - Gait inability [Unknown]
  - Upper limb fracture [Unknown]
  - Fall [Unknown]
  - Malaise [Unknown]
  - Asthenia [Unknown]
  - Pain [Unknown]
